FAERS Safety Report 17483252 (Version 1)
Quarter: 2020Q1

REPORT INFORMATION
  Report Type: Report from Study
  Country: CO (occurrence: CO)
  Receive Date: 20200302
  Receipt Date: 20200302
  Transmission Date: 20200409
  Serious: Yes (Hospitalization, Other)
  Sender: FDA-Public Use
  Company Number: CO-ROCHE-2541206

PATIENT
  Sex: Male

DRUGS (3)
  1. TACROLIMUS. [Concomitant]
     Active Substance: TACROLIMUS
     Route: 065
  2. CELLCEPT [Suspect]
     Active Substance: MYCOPHENOLATE MOFETIL\MYCOPHENOLATE MOFETIL HYDROCHLORIDE
     Indication: PRODUCT USED FOR UNKNOWN INDICATION
     Route: 048
  3. FLUCONAZOL [Concomitant]
     Active Substance: FLUCONAZOLE

REACTIONS (10)
  - Diarrhoea [Recovered/Resolved]
  - Fungaemia [Unknown]
  - Pyrexia [Recovered/Resolved]
  - Onychomadesis [Unknown]
  - Pneumonia [Unknown]
  - Weight decreased [Recovered/Resolved]
  - Asthenia [Recovered/Resolved]
  - Blood creatinine increased [Unknown]
  - Pain [Recovered/Resolved]
  - Blood potassium increased [Unknown]
